FAERS Safety Report 6479007-9 (Version None)
Quarter: 2009Q4

REPORT INFORMATION
  Report Type: 
  Country: None (occurrence: None)
  Receive Date: 20091207
  Receipt Date: 20090209
  Transmission Date: 20100525
  Serious: No
  Sender: FDA-Public Use
  Company Number: US-AMGEN-KDL332989

PATIENT
  Sex: Female

DRUGS (5)
  1. ENBREL [Suspect]
     Indication: RHEUMATOID ARTHRITIS
     Route: 058
     Dates: start: 20081001
  2. METHOTREXATE [Concomitant]
  3. PREDNISONE [Concomitant]
     Dates: start: 20070220
  4. FOLIC ACID [Concomitant]
     Dates: start: 20070404
  5. ESTRASE [Concomitant]
     Dates: start: 20080901

REACTIONS (9)
  - ANXIETY [None]
  - FEELING ABNORMAL [None]
  - FEELING JITTERY [None]
  - INJECTION SITE ERYTHEMA [None]
  - INJECTION SITE HAEMATOMA [None]
  - INJECTION SITE PAIN [None]
  - INJECTION SITE PRURITUS [None]
  - PSYCHOMOTOR HYPERACTIVITY [None]
  - TREMOR [None]
